FAERS Safety Report 24837267 (Version 4)
Quarter: 2025Q1

REPORT INFORMATION
  Report Type: Spontaneous
  Country: US (occurrence: US)
  Receive Date: 20250113
  Receipt Date: 20250214
  Transmission Date: 20250409
  Serious: No
  Sender: CALLIDITAS THERAPEUTICS AB
  Company Number: US-Calliditas-2025CAL00024

PATIENT
  Age: 53 Year
  Sex: Female

DRUGS (3)
  1. TARPEYO [Suspect]
     Active Substance: BUDESONIDE
     Indication: IgA nephropathy
     Route: 048
     Dates: start: 202407
  2. PROTONIX [Concomitant]
     Active Substance: PANTOPRAZOLE SODIUM
  3. GUMMIES SLEEP [Concomitant]

REACTIONS (6)
  - Skin hypopigmentation [Not Recovered/Not Resolved]
  - Purpura [Not Recovered/Not Resolved]
  - Skin texture abnormal [Not Recovered/Not Resolved]
  - Anxiety [Not Recovered/Not Resolved]
  - Insomnia [Not Recovered/Not Resolved]
  - Tension [Not Recovered/Not Resolved]

NARRATIVE: CASE EVENT DATE: 20240801
